FAERS Safety Report 6313334-0 (Version None)
Quarter: 2009Q3

REPORT INFORMATION
  Report Type: 
  Country: None (occurrence: None)
  Receive Date: 20090818
  Receipt Date: 20090813
  Transmission Date: 20100115
  Serious: Yes (Life-Threatening, Hospitalization)
  Sender: FDA-Public Use
  Company Number: B0588546A

PATIENT
  Age: 53 Year
  Sex: Male

DRUGS (8)
  1. AUGMENTIN [Suspect]
     Indication: LUNG DISORDER
     Route: 065
     Dates: start: 20080430, end: 20080506
  2. TIENAM [Suspect]
     Indication: ANTIBIOTIC THERAPY
     Route: 065
     Dates: start: 20080523, end: 20080526
  3. TAZOCILLINE [Suspect]
     Indication: ANTIBIOTIC THERAPY
     Route: 042
     Dates: start: 20080430, end: 20080519
  4. CIFLOX [Suspect]
     Indication: ANTIBIOTIC THERAPY
     Route: 065
     Dates: start: 20080430, end: 20080519
  5. VANCOMYCIN [Suspect]
     Indication: ANTIBIOTIC THERAPY
     Route: 042
     Dates: start: 20080430, end: 20080519
  6. ZYVOXID [Concomitant]
     Route: 065
     Dates: start: 20080523
  7. VALIUM [Concomitant]
     Indication: ALCOHOL WITHDRAWAL SYNDROME
     Route: 065
     Dates: start: 20080401
  8. OFLOCET [Concomitant]
     Indication: ANTIBIOTIC THERAPY
     Route: 065
     Dates: start: 20080430

REACTIONS (20)
  - ANURIA [None]
  - BLOOD LACTATE DEHYDROGENASE INCREASED [None]
  - BODY TEMPERATURE INCREASED [None]
  - BRAIN INJURY [None]
  - BRONCHIAL OBSTRUCTION [None]
  - CONFUSIONAL STATE [None]
  - DRUG RASH WITH EOSINOPHILIA AND SYSTEMIC SYMPTOMS [None]
  - ENCEPHALOPATHY [None]
  - EOSINOPHILIA [None]
  - GENERAL PHYSICAL HEALTH DETERIORATION [None]
  - HYPERSENSITIVITY [None]
  - LEUKOPENIA [None]
  - LUNG DISORDER [None]
  - POLYNEUROPATHY [None]
  - PURPURA [None]
  - PYREXIA [None]
  - RASH MORBILLIFORM [None]
  - RENAL FAILURE ACUTE [None]
  - RENAL TUBULAR DISORDER [None]
  - TOXIC SKIN ERUPTION [None]
